FAERS Safety Report 4674933-5 (Version None)
Quarter: 2005Q2

REPORT INFORMATION
  Report Type: 
  Country: None (occurrence: None)
  Receive Date: 20050525
  Receipt Date: 20050513
  Transmission Date: 20051028
  Serious: Yes (Other)
  Sender: FDA-Public Use
  Company Number: 2005051630

PATIENT
  Sex: Female

DRUGS (6)
  1. ARTHROTEC [Suspect]
     Indication: PAIN
     Dosage: 150MG/400MCG (2 IN 1 D), ORAL
     Route: 048
     Dates: start: 20050201
  2. DETROL [Suspect]
     Indication: BLADDER DISORDER
     Dosage: 4 MG (2 MG, 2 IN 1 D), ORAL
     Route: 048
     Dates: start: 20030101
  3. GLYBURIDE [Concomitant]
  4. GLUCOPHAGE [Concomitant]
  5. LISINOPRIL [Concomitant]
  6. PREMARIN [Concomitant]

REACTIONS (12)
  - ABDOMINAL PAIN UPPER [None]
  - ANOREXIA [None]
  - BACK INJURY [None]
  - DRUG INEFFECTIVE [None]
  - DYSPEPSIA [None]
  - FALL [None]
  - FATIGUE [None]
  - JOINT INJURY [None]
  - LUNG CANCER METASTATIC [None]
  - NAUSEA [None]
  - PAIN [None]
  - WEIGHT DECREASED [None]
